FAERS Safety Report 6392744-X (Version None)
Quarter: 2009Q4

REPORT INFORMATION
  Report Type: 
  Country: None (occurrence: None)
  Receive Date: 20091007
  Receipt Date: 20090812
  Transmission Date: 20100525
  Serious: No
  Sender: FDA-Public Use
  Company Number: US-ALLERGAN-0911211US

PATIENT
  Age: 45 Year
  Sex: Female

DRUGS (5)
  1. LATISSE [Suspect]
     Indication: HYPOTRICHOSIS
     Dosage: UNK
     Route: 061
     Dates: start: 20090601
  2. ZYRTEC [Concomitant]
  3. SUDAFED 12 HOUR [Concomitant]
  4. PRILOSEC [Concomitant]
  5. SPIRONOLACTONE [Concomitant]
     Indication: ACNE

REACTIONS (1)
  - EYELASH DISCOLOURATION [None]
